FAERS Safety Report 19255638 (Version 3)
Quarter: 2021Q2

REPORT INFORMATION
  Report Type: Report from Study
  Country: None (occurrence: NL)
  Receive Date: 20210514
  Receipt Date: 20210524
  Transmission Date: 20210717
  Serious: No
  Sender: FDA-Public Use
  Company Number: NL-ABBVIE-21K-114-3886493-00

PATIENT
  Age: 72 Year
  Sex: Male

DRUGS (15)
  1. MADOPAR [Concomitant]
     Active Substance: BENSERAZIDE HYDROCHLORIDE\LEVODOPA
     Indication: MUSCLE RIGIDITY
     Dosage: NOT LATER THAN 4:00 AM
  2. DUODOPA [Suspect]
     Active Substance: CARBIDOPA\LEVODOPA
     Dosage: MD:4.0ML, CD:1.9ML/H, ED:1.0ML
     Route: 050
     Dates: start: 202104, end: 202104
  3. MADOPAR DISPER [Concomitant]
     Active Substance: BENSERAZIDE HYDROCHLORIDE\LEVODOPA
     Indication: PRODUCT USED FOR UNKNOWN INDICATION
  4. DUODOPA [Suspect]
     Active Substance: CARBIDOPA\LEVODOPA
     Indication: PARKINSON^S DISEASE
     Dosage: MD:6.0ML, CD:3.3ML/H, ED:2.5ML
     Route: 050
     Dates: start: 20210420, end: 202104
  5. LACTULOSESTROOP [Concomitant]
     Indication: LAXATIVE SUPPORTIVE CARE
     Route: 048
  6. LEVODOPA BENSERAZIDE [Concomitant]
     Active Substance: BENSERAZIDE\LEVODOPA
     Indication: PARKINSON^S DISEASE
     Dosage: 1 TABLET?FREQUNECY AT 6.00 AM
     Route: 048
     Dates: start: 20160601
  7. LEVODOPA CARBID [Concomitant]
     Active Substance: CARBIDOPA\LEVODOPA
     Indication: PARKINSON^S DISEASE
     Dosage: 5
     Route: 048
     Dates: start: 20160801
  8. AMANTADINE. [Concomitant]
     Active Substance: AMANTADINE HYDROCHLORIDE
     Indication: PARKINSON^S DISEASE
     Dosage: ONE 100 MG TABLET
     Route: 048
     Dates: start: 20170301
  9. RIVASTIGMINE. [Concomitant]
     Active Substance: RIVASTIGMINE
     Indication: HALLUCINATION
     Dosage: RIVASTIGMINE PATCHES?9.5/24
     Route: 062
  10. MOVICOLON [Concomitant]
     Active Substance: POLYETHYLENE GLYCOL 3350\POTASSIUM CHLORIDE\SODIUM BICARBONATE\SODIUM CHLORIDE
     Indication: DEFAECATION DISORDER
  11. DUODOPA [Suspect]
     Active Substance: CARBIDOPA\LEVODOPA
     Dosage: MD 5.0 ML; CD 3.3 ML/H; ED 2.0 ML
     Route: 050
     Dates: start: 202104, end: 2021
  12. DUODOPA [Suspect]
     Active Substance: CARBIDOPA\LEVODOPA
     Dosage: MD: 4.5 ML, CD: 3.0 ML/H, ED: 2.0 ML
     Route: 050
     Dates: start: 2021, end: 2021
  13. DUODOPA [Suspect]
     Active Substance: CARBIDOPA\LEVODOPA
     Dosage: MD: 7.5ML, CD: 3.0ML/H, ED: 2.0ML
     Route: 050
     Dates: start: 2021
  14. LACTULOSUM [Concomitant]
     Indication: PRODUCT USED FOR UNKNOWN INDICATION
  15. ENTACAPONE. [Concomitant]
     Active Substance: ENTACAPONE
     Indication: PARKINSON^S DISEASE
     Route: 048
     Dates: start: 20160301

REACTIONS (24)
  - Poor quality sleep [Recovering/Resolving]
  - Hyperkinesia [Recovering/Resolving]
  - Freezing phenomenon [Not Recovered/Not Resolved]
  - Mobility decreased [Not Recovered/Not Resolved]
  - Medical device repositioning [Recovered/Resolved]
  - Abnormal dreams [Not Recovered/Not Resolved]
  - Psychiatric symptom [Recovered/Resolved]
  - Stress [Unknown]
  - Pollakiuria [Not Recovered/Not Resolved]
  - Nocturia [Not Recovered/Not Resolved]
  - Fatigue [Not Recovered/Not Resolved]
  - Reduced facial expression [Not Recovered/Not Resolved]
  - Impaired quality of life [Recovering/Resolving]
  - Dyskinesia [Recovering/Resolving]
  - Decreased appetite [Recovering/Resolving]
  - Procedural pain [Recovering/Resolving]
  - Home care [Not Recovered/Not Resolved]
  - Speech disorder [Not Recovered/Not Resolved]
  - Posture abnormal [Not Recovered/Not Resolved]
  - Enuresis [Recovered/Resolved]
  - Gait disturbance [Not Recovered/Not Resolved]
  - On and off phenomenon [Not Recovered/Not Resolved]
  - Muscle rigidity [Not Recovered/Not Resolved]
  - Middle insomnia [Not Recovered/Not Resolved]

NARRATIVE: CASE EVENT DATE: 2021
